FAERS Safety Report 8994414 (Version 1)
Quarter: 2012Q4

REPORT INFORMATION
  Report Type: Spontaneous
  Country: US (occurrence: None)
  Receive Date: 20121228
  Receipt Date: 20121228
  Transmission Date: 20130627
  Serious: Yes (Other)
  Sender: FDA-Public Use
  Company Number: None

PATIENT
  Age: 19 Year
  Sex: Female

DRUGS (2)
  1. LEVETIRACETAM [Suspect]
     Indication: MYOCLONIC EPILEPSY
     Route: 048
     Dates: start: 200904
  2. LEVETIRACETAM [Suspect]
     Indication: DISEASE PROGRESSION
     Route: 048
     Dates: start: 200904

REACTIONS (2)
  - Product substitution issue [None]
  - Rash generalised [None]
